FAERS Safety Report 8145737 (Version 5)
Quarter: 2013Q3

REPORT INFORMATION
  Report Type: Spontaneous
  Country: GB (occurrence: GB)
  Receive Date: 20110921
  Receipt Date: 20130725
  Transmission Date: 20140515
  Serious: Yes (Other)
  Sender: FDA-Public Use
  Company Number: GB-SANOFI-AVENTIS-2011SA060093

PATIENT
  Age: 44 Year
  Sex: Male

DRUGS (6)
  1. RIFINAH [Suspect]
     Indication: PROPHYLAXIS
     Dosage: STRENGTH- RIFAMPICIN 300MG+ISONIAZID 150 MG
     Route: 048
     Dates: start: 200109, end: 200110
  2. RIFINAH [Suspect]
     Indication: TUBERCULOSIS
     Dosage: STRENGTH- RIFAMPICIN 300MG+ISONIAZID 150 MG
     Route: 048
     Dates: start: 200109, end: 200110
  3. RIFINAH [Suspect]
     Indication: PROPHYLAXIS
     Route: 048
     Dates: start: 200110
  4. RIFINAH [Suspect]
     Indication: TUBERCULOSIS
     Route: 048
     Dates: start: 200110
  5. IBUPROFEN [Concomitant]
     Route: 065
  6. CO-CODAMOL [Concomitant]
     Route: 065

REACTIONS (16)
  - Biliary cirrhosis primary [Unknown]
  - Liver function test abnormal [Unknown]
  - Food aversion [Unknown]
  - Asthenia [Unknown]
  - Overdose [Unknown]
  - Muscle spasms [Unknown]
  - Palpitations [Unknown]
  - Postural orthostatic tachycardia syndrome [Unknown]
  - Syncope [Unknown]
  - Pruritus [Unknown]
  - Dyspnoea [Unknown]
  - Dizziness [Unknown]
  - Malaise [Unknown]
  - Burning sensation [Unknown]
  - Hepatitis [Not Recovered/Not Resolved]
  - Polyneuropathy [Unknown]
